FAERS Safety Report 9858693 (Version 1)
Quarter: 2014Q1

REPORT INFORMATION
  Report Type: Spontaneous
  Country: US (occurrence: US)
  Receive Date: 20140131
  Receipt Date: 20140131
  Transmission Date: 20141002
  Serious: Yes (Death)
  Sender: FDA-Public Use
  Company Number: US-SA-2014SA012164

PATIENT
  Age: 65 Year
  Sex: Female

DRUGS (2)
  1. LANTUS SOLOSTAR [Suspect]
     Dosage: DOSE:55 UNIT(S)
     Route: 065
     Dates: start: 20131025, end: 201311
  2. SOLOSTAR [Concomitant]
     Dates: start: 20131025, end: 201311

REACTIONS (1)
  - Death [Fatal]
